FAERS Safety Report 26130688 (Version 2)
Quarter: 2025Q4

REPORT INFORMATION
  Report Type: Spontaneous
  Country: US (occurrence: US)
  Receive Date: 20251208
  Receipt Date: 20251210
  Transmission Date: 20260118
  Serious: No
  Sender: BAYER HEALTHCARE LLC
  Company Number: US-BAYER-2025A159439

PATIENT
  Age: 43 Year
  Sex: Female

DRUGS (1)
  1. ALKA-SELTZER HEARTBURN PLUS GAS RELIEFCHEWS TROPICAL PUNCH [Suspect]
     Active Substance: CALCIUM CARBONATE\DIMETHICONE
     Indication: Gastrointestinal disorder
     Dosage: AS NEEDED BUT 2 CHEWABLE TABLETS
     Route: 048
     Dates: start: 20251130

REACTIONS (2)
  - Dental restoration failure [None]
  - Device issue [None]

NARRATIVE: CASE EVENT DATE: 20251130
